FAERS Safety Report 4267462-4 (Version None)
Quarter: 2004Q1

REPORT INFORMATION
  Report Type: 
  Country: None (occurrence: None)
  Receive Date: 20040102
  Receipt Date: 20031106
  Transmission Date: 20041129
  Serious: No
  Sender: FDA-Public Use
  Company Number: BLOC000734

PATIENT
  Age: 40 Year
  Sex: Female

DRUGS (4)
  1. MYOBLOC [Suspect]
     Indication: TORTICOLLIS
     Dosage: INTRAMUSCULAR
     Route: 030
  2. ATIVAN [Concomitant]
  3. WELLBUTRIN [Concomitant]
  4. ESKALITH (LITHIUM) ??/??/???? - [Concomitant]

REACTIONS (1)
  - INJECTION SITE PAIN [None]
